FAERS Safety Report 5506273-6 (Version None)
Quarter: 2007Q4

REPORT INFORMATION
  Report Type: 
  Country: None (occurrence: None)
  Receive Date: 20071105
  Receipt Date: 20071023
  Transmission Date: 20080405
  Serious: Yes (Life-Threatening, Other)
  Sender: FDA-Public Use
  Company Number: US-WYE-H00639207

PATIENT
  Age: 54 Year
  Sex: Female
  Weight: 107.14 kg

DRUGS (10)
  1. PREMARIN [Suspect]
     Indication: MENOPAUSE
     Route: 048
     Dates: end: 20060301
  2. PREMARIN [Suspect]
     Route: 048
     Dates: start: 20070101, end: 20070821
  3. SINGULAIR [Concomitant]
     Indication: RHINITIS ALLERGIC
     Route: 065
  4. XANAX [Concomitant]
     Indication: ANXIETY
     Dosage: 0.5MG FOUR TIMES DAILY; AS NEEDED
     Route: 048
  5. DILTIAZEM HYDROCHLORIDE [Concomitant]
     Indication: HYPERTENSION
     Route: 048
  6. PROTONIX [Concomitant]
     Indication: GASTROOESOPHAGEAL REFLUX DISEASE
     Route: 048
  7. DARVOCET [Concomitant]
     Indication: PAIN
     Dosage: 1 TAB EVERY 8 HOURS, AS NEEDED
     Route: 048
  8. DIOVAN [Concomitant]
     Indication: HYPERTENSION
     Dosage: 80 MG/12.5 MG; 1 TABLET DAILY
     Route: 048
  9. TRAMADOL HCL [Concomitant]
     Indication: PAIN
     Dosage: 50MG; 2 TABLETS THREE TIMES A DAY
     Route: 048
  10. EFFEXOR XR [Concomitant]
     Indication: DEPRESSION
     Route: 048

REACTIONS (3)
  - PULMONARY EMBOLISM [None]
  - PULMONARY HYPERTENSION [None]
  - THROMBOPHLEBITIS SUPERFICIAL [None]
